FAERS Safety Report 4708384-1 (Version None)
Quarter: 2005Q3

REPORT INFORMATION
  Report Type: 
  Country: None (occurrence: None)
  Receive Date: 20050706
  Receipt Date: 20050706
  Transmission Date: 20060218
  Serious: No
  Sender: FDA-Public Use
  Company Number: None

PATIENT
  Sex: Male
  Weight: 69.8 kg

DRUGS (2)
  1. CYTARABINE [Suspect]
     Indication: ACUTE MYELOID LEUKAEMIA
     Dosage: 100 MG/M2/DAY BY CIV ON DAYS 1-7
     Dates: start: 20050330
  2. DAUNORUBICIN HCL [Suspect]
     Dosage: 60 MG/M2/DAY BY IVP ON DAYS 1-3

REACTIONS (9)
  - BONE MARROW DEPRESSION [None]
  - DYSPNOEA [None]
  - FEBRILE NEUTROPENIA [None]
  - HAEMOGLOBIN ABNORMAL [None]
  - HYPOXIA [None]
  - LUNG INFILTRATION [None]
  - PLATELET COUNT ABNORMAL [None]
  - PSEUDOMONAS INFECTION [None]
  - WHITE BLOOD CELL DISORDER [None]
